FAERS Safety Report 7224814-8 (Version None)
Quarter: 2011Q1

REPORT INFORMATION
  Report Type: 
  Country: None (occurrence: None)
  Receive Date: 20110113
  Receipt Date: 20110106
  Transmission Date: 20110831
  Serious: Yes (Hospitalization)
  Sender: FDA-Public Use
  Company Number: FR-SANOFI-AVENTIS-2011SA001221

PATIENT
  Age: 67 Year
  Sex: Female

DRUGS (5)
  1. STILNOX [Suspect]
     Indication: SLEEP DISORDER
     Dosage: DOSE:1 UNIT(S)
     Route: 048
     Dates: end: 20101126
  2. DOGMATIL [Suspect]
     Dosage: DOSE:2 UNIT(S)
     Route: 048
     Dates: end: 20101126
  3. ACTISKENAN [Suspect]
     Route: 048
     Dates: start: 20101122, end: 20101126
  4. PANOS [Suspect]
     Dosage: DOSE:1 UNIT(S)
     Route: 048
     Dates: start: 20101122, end: 20101126
  5. FENOFIBRATE [Suspect]
     Dosage: DOSE:1 UNIT(S)
     Route: 048
     Dates: end: 20101126

REACTIONS (7)
  - RHABDOMYOLYSIS [None]
  - CONFUSIONAL STATE [None]
  - MIOSIS [None]
  - SOMNOLENCE [None]
  - RENAL FAILURE ACUTE [None]
  - FALL [None]
  - PERSECUTORY DELUSION [None]
